FAERS Safety Report 4969478-9 (Version None)
Quarter: 2006Q2

REPORT INFORMATION
  Report Type: 
  Country: None (occurrence: None)
  Receive Date: 20060406
  Receipt Date: 20060328
  Transmission Date: 20061013
  Serious: Yes (Death)
  Sender: FDA-Public Use
  Company Number: 163-20785-06020247

PATIENT
  Age: 87 Year
  Sex: Female

DRUGS (1)
  1. THALOMID [Suspect]
     Indication: MYELODYSPLASTIC SYNDROME
     Dosage: 50 MG, DAILY, ORAL
     Route: 048
     Dates: start: 20051001, end: 20060117

REACTIONS (4)
  - CARDIAC FAILURE CONGESTIVE [None]
  - DISEASE PROGRESSION [None]
  - MYELODYSPLASTIC SYNDROME [None]
  - RENAL FAILURE CHRONIC [None]
